FAERS Safety Report 6809854-2 (Version None)
Quarter: 2010Q2

REPORT INFORMATION
  Report Type: 
  Country: None (occurrence: None)
  Receive Date: 20100625
  Receipt Date: 20100615
  Transmission Date: 20101027
  Serious: Yes (Hospitalization)
  Sender: FDA-Public Use
  Company Number: 2010EU002591

PATIENT
  Age: 70 Year
  Sex: Female

DRUGS (1)
  1. VESICARE [Suspect]

REACTIONS (4)
  - AGITATION [None]
  - CONFUSIONAL STATE [None]
  - PSYCHOTIC BEHAVIOUR [None]
  - RESTLESSNESS [None]
